FAERS Safety Report 11393427 (Version 2)
Quarter: 2015Q3

REPORT INFORMATION
  Report Type: Spontaneous
  Country: US (occurrence: US)
  Receive Date: 20150818
  Receipt Date: 20150921
  Transmission Date: 20151125
  Serious: No
  Sender: FDA-Public Use
  Company Number: ALCN2015US005123

PATIENT
  Age: 56 Year
  Sex: Female

DRUGS (2)
  1. PREDNISOLONE ACETATE. [Suspect]
     Active Substance: PREDNISOLONE ACETATE
     Dosage: 1 GTT, TID
     Route: 047
     Dates: start: 20150809, end: 20150812
  2. PREDNISOLONE ACETATE. [Suspect]
     Active Substance: PREDNISOLONE ACETATE
     Indication: EYE IRRITATION
     Dosage: 1 GTT, Q2H
     Route: 047
     Dates: start: 20150809

REACTIONS (4)
  - Foreign body sensation in eyes [Recovered/Resolved]
  - Off label use [Recovered/Resolved]
  - Product physical consistency issue [Recovered/Resolved]
  - Medication residue present [Recovered/Resolved]

NARRATIVE: CASE EVENT DATE: 20150809
